FAERS Safety Report 18534800 (Version 6)
Quarter: 2021Q3

REPORT INFORMATION
  Report Type: Spontaneous
  Country: US (occurrence: US)
  Receive Date: 20201123
  Receipt Date: 20210930
  Transmission Date: 20211014
  Serious: Yes (Hospitalization, Other)
  Sender: FDA-Public Use
  Company Number: US-PFIZER INC-2019280544

PATIENT
  Age: 63 Year
  Sex: Female

DRUGS (4)
  1. XELJANZ XR [Suspect]
     Active Substance: TOFACITINIB CITRATE
     Indication: RHEUMATOID ARTHRITIS
     Dosage: 11 MG, 1X/DAY
     Route: 048
     Dates: start: 2020
  2. HYDROCHLOROTHIAZIDE/POTASSIUM [Concomitant]
     Dosage: UNK
  3. LOSARTAN. [Concomitant]
     Active Substance: LOSARTAN
  4. XELJANZ XR [Suspect]
     Active Substance: TOFACITINIB CITRATE
     Indication: SYSTEMIC LUPUS ERYTHEMATOSUS

REACTIONS (18)
  - Hypoaesthesia [Unknown]
  - Neuralgia [Unknown]
  - Wound [Recovered/Resolved]
  - COVID-19 [Unknown]
  - Vomiting [Unknown]
  - Paraesthesia [Unknown]
  - Depressed mood [Unknown]
  - Inflammation [Not Recovered/Not Resolved]
  - Asthenia [Unknown]
  - Asthma [Unknown]
  - Arthralgia [Unknown]
  - Sneezing [Unknown]
  - Contusion [Recovered/Resolved]
  - Gastroenteritis viral [Unknown]
  - Arthralgia [Not Recovered/Not Resolved]
  - Aphonia [Unknown]
  - Eye haemorrhage [Unknown]
  - Diarrhoea [Unknown]

NARRATIVE: CASE EVENT DATE: 2020
